FAERS Safety Report 9360572 (Version 3)
Quarter: 2015Q3

REPORT INFORMATION
  Report Type: Report from Study
  Country: US (occurrence: US)
  Receive Date: 20130621
  Receipt Date: 20150706
  Transmission Date: 20151125
  Serious: Yes (Hospitalization, Other)
  Sender: FDA-Public Use
  Company Number: US-SHIRE-ALL1-2013-03952

PATIENT
  Age: 3 Year
  Sex: Male
  Weight: 21.6 kg

DRUGS (9)
  1. IDURSULFASE [Suspect]
     Active Substance: IDURSULFASE
     Dosage: UNK UNK, 1X/WEEK
     Route: 041
     Dates: start: 20100413
  2. IBUPROFEN. [Concomitant]
     Active Substance: IBUPROFEN
     Indication: PREMEDICATION
     Dosage: 150 MG, 1X/WEEK
     Route: 048
     Dates: start: 20130415
  3. HYDROCORTISONE. [Concomitant]
     Active Substance: HYDROCORTISONE
     Indication: PREMEDICATION
     Dosage: UNK, UNKNOWN
     Route: 065
     Dates: start: 20100604
  4. TYLENOL [Concomitant]
     Active Substance: ACETAMINOPHEN
     Indication: PREMEDICATION
     Dosage: UNK, UNKNOWN
     Route: 065
     Dates: start: 20100604
  5. LIDOCAINE. [Concomitant]
     Active Substance: LIDOCAINE
     Indication: PRODUCT USED FOR UNKNOWN INDICATION
     Dosage: UNK, UNKNOWN (1 APPLICATION TOPICALLY)
     Route: 061
     Dates: start: 20130610, end: 20130610
  6. IDURSULFASE [Suspect]
     Active Substance: IDURSULFASE
     Dosage: 6 MG, 1X/WEEK
     Route: 041
     Dates: start: 20100604
  7. HEPARIN [Concomitant]
     Active Substance: HEPARIN SODIUM
     Indication: PRODUCT USED FOR UNKNOWN INDICATION
     Dosage: 50 IU, UNKNOWN
     Route: 042
     Dates: start: 20130611, end: 20130611
  8. IDURSULFASE [Suspect]
     Active Substance: IDURSULFASE
     Indication: MUCOPOLYSACCHARIDOSIS II
     Dosage: 0.59 MG/KG, UNK
     Route: 041
     Dates: start: 20130219
  9. SODIUM CHLORIDE. [Concomitant]
     Active Substance: SODIUM CHLORIDE
     Indication: PRODUCT USED FOR UNKNOWN INDICATION
     Dosage: 0.9 %, UNKNOWN (5 ML OF 0.9% NACL)
     Route: 042
     Dates: start: 20130610, end: 20130610

REACTIONS (2)
  - Infusion related reaction [Recovered/Resolved]
  - Angioedema [Recovered/Resolved]

NARRATIVE: CASE EVENT DATE: 20130610
